FAERS Safety Report 12117714 (Version 1)
Quarter: 2016Q1

REPORT INFORMATION
  Report Type: Spontaneous
  Country: US (occurrence: US)
  Receive Date: 20160226
  Receipt Date: 20160226
  Transmission Date: 20160526
  Serious: No
  Sender: FDA-Public Use
  Company Number: US-AUROBINDO-AUR-APL-2015-01449

PATIENT
  Age: 1 Year
  Sex: Male
  Weight: 9.52 kg

DRUGS (1)
  1. CEFDINIR CAPSULES 300 MG [Suspect]
     Active Substance: CEFDINIR
     Indication: EAR INFECTION
     Dosage: 150 MG, TWO TIMES A DAY(HALF OF 300MG CAPSULES)
     Route: 048
     Dates: start: 20131228

REACTIONS (1)
  - Faeces discoloured [Recovered/Resolved]

NARRATIVE: CASE EVENT DATE: 20140102
